FAERS Safety Report 4825109-X (Version None)
Quarter: 2005Q4

REPORT INFORMATION
  Report Type: 
  Country: None (occurrence: None)
  Receive Date: 20051109
  Receipt Date: 20051109
  Transmission Date: 20060501
  Serious: Yes (Other)
  Sender: FDA-Public Use
  Company Number: None

PATIENT
  Age: 53 Year
  Sex: Male
  Weight: 103.4 kg

DRUGS (1)
  1. DOBUTAMINE [Suspect]

REACTIONS (5)
  - ANXIETY [None]
  - MUSCLE SPASMS [None]
  - PARANOIA [None]
  - RESTLESSNESS [None]
  - UNEVALUABLE EVENT [None]
